FAERS Safety Report 11435325 (Version 2)
Quarter: 2015Q3

REPORT INFORMATION
  Report Type: Spontaneous
  Country: US (occurrence: None)
  Receive Date: 20150831
  Receipt Date: 20150916
  Transmission Date: 20151125
  Serious: Yes (Other)
  Sender: FDA-Public Use
  Company Number: US-MDT-ADR-2015-01661

PATIENT
  Age: 49 Year
  Sex: Female

DRUGS (1)
  1. BACLOFEN INTRATHECAL UNK [Suspect]
     Active Substance: BACLOFEN
     Indication: MUSCLE SPASTICITY
     Dosage: UNK

REACTIONS (11)
  - Gait disturbance [None]
  - Weight bearing difficulty [None]
  - Weight increased [None]
  - Impaired healing [None]
  - Allergy to metals [None]
  - Arthritis [None]
  - Pain in extremity [None]
  - Incision site erythema [None]
  - Device dislocation [None]
  - Dizziness [None]
  - Decreased activity [None]
